FAERS Safety Report 7333445-0 (Version None)
Quarter: 2011Q1

REPORT INFORMATION
  Report Type: 
  Country: None (occurrence: None)
  Receive Date: 20110304
  Receipt Date: 20110228
  Transmission Date: 20110831
  Serious: Yes (Hospitalization)
  Sender: FDA-Public Use
  Company Number: PHHO2011DE03820

PATIENT
  Sex: Male
  Weight: 54 kg

DRUGS (9)
  1. TAMSULOSIN HYDROCHLORIDE [Concomitant]
     Indication: BENIGN PROSTATIC HYPERPLASIA
  2. AVASTIN [Suspect]
     Dosage: UNK
     Dates: end: 20110301
  3. AVASTIN [Suspect]
     Indication: METASTATIC RENAL CELL CARCINOMA
     Dosage: 10 MG/KG, UNK
     Dates: start: 20100202, end: 20110301
  4. IRENAT [Concomitant]
     Indication: HYPERTHYROIDISM
  5. PANTOZOL [Concomitant]
     Indication: GASTRIC ULCER
  6. PREDNISOLONE [Concomitant]
     Indication: GASTRIC ULCER
  7. CALCIUM D3 [Concomitant]
     Indication: MINERAL SUPPLEMENTATION
  8. AFINITOR [Suspect]
     Indication: METASTATIC RENAL CELL CARCINOMA
     Dosage: 10 MG, QD
     Route: 048
     Dates: start: 20100202
  9. SULFASALAZINE [Concomitant]
     Indication: INFLAMMATION

REACTIONS (2)
  - CONVULSION [None]
  - HEADACHE [None]
